FAERS Safety Report 6795122-4 (Version None)
Quarter: 2010Q2

REPORT INFORMATION
  Report Type: 
  Country: None (occurrence: None)
  Receive Date: 20100625
  Receipt Date: 20100625
  Transmission Date: 20101027
  Serious: Yes (Hospitalization)
  Sender: FDA-Public Use
  Company Number: PHHO2008US11733

PATIENT
  Sex: Male
  Weight: 76.4 kg

DRUGS (1)
  1. AFINITOR [Suspect]
     Indication: PANCREATIC NEUROENDOCRINE TUMOUR
     Dosage: 10 MG DAILY
     Route: 048
     Dates: start: 20080417, end: 20080924

REACTIONS (11)
  - ANAEMIA [None]
  - ASTHENIA [None]
  - BACTERAEMIA [None]
  - CHILLS [None]
  - FATIGUE [None]
  - KLEBSIELLA INFECTION [None]
  - MALAISE [None]
  - NAUSEA [None]
  - NIGHT SWEATS [None]
  - PYREXIA [None]
  - VOMITING [None]
